FAERS Safety Report 7687318-4 (Version None)
Quarter: 2011Q3

REPORT INFORMATION
  Report Type: 
  Country: None (occurrence: None)
  Receive Date: 20110816
  Receipt Date: 20110809
  Transmission Date: 20111222
  Serious: Yes (Hospitalization)
  Sender: FDA-Public Use
  Company Number: JP-B.I. PHARMACEUTICALS,INC./RIDGEFIELD-2011-BP-19498NB

PATIENT
  Age: 74 Year
  Sex: Male

DRUGS (8)
  1. NORVASC [Concomitant]
     Dosage: 5 MG
     Route: 048
     Dates: end: 20110723
  2. PRADAXA [Suspect]
     Dosage: 300 MG
     Route: 048
     Dates: start: 20110709, end: 20110723
  3. PLETAL [Concomitant]
     Dosage: 500 MCG
     Route: 048
     Dates: end: 20110723
  4. RINDERON-A [Concomitant]
     Route: 048
     Dates: end: 20110723
  5. PRADAXA [Suspect]
     Route: 048
     Dates: start: 20110808
  6. METHYCOBAL [Concomitant]
     Dosage: 30 MG
     Route: 048
     Dates: end: 20110723
  7. CARVEDILOL [Concomitant]
     Dosage: 10 MG
     Route: 048
     Dates: end: 20110723
  8. LOXONIN [Concomitant]
     Route: 065
     Dates: end: 20110723

REACTIONS (2)
  - HYPERGLYCAEMIA [None]
  - RENAL DISORDER [None]
